FAERS Safety Report 6163481-1 (Version None)
Quarter: 2009Q2

REPORT INFORMATION
  Report Type: 
  Country: None (occurrence: None)
  Receive Date: 20090420
  Receipt Date: 20080508
  Transmission Date: 20091009
  Serious: Yes (Hospitalization)
  Sender: FDA-Public Use
  Company Number: SPV1-2008-00028

PATIENT
  Age: 37 Year
  Sex: Male

DRUGS (2)
  1. LIALDA [Suspect]
     Indication: COLITIS ULCERATIVE
     Dosage: 2.4 G, 1X/DAY:QD, ORAL
     Route: 048
     Dates: start: 20071201, end: 20071210
  2. ZYRTEC [Concomitant]

REACTIONS (1)
  - PANCREATITIS [None]
